FAERS Safety Report 23424005 (Version 2)
Quarter: 2024Q1

REPORT INFORMATION
  Report Type: Report from Study
  Country: ES (occurrence: ES)
  Receive Date: 20240120
  Receipt Date: 20240131
  Transmission Date: 20240410
  Serious: Yes (Other)
  Sender: FDA-Public Use
  Company Number: ES-ABBVIE-5458027

PATIENT
  Sex: Female

DRUGS (4)
  1. CARBIDOPA\LEVODOPA [Suspect]
     Active Substance: CARBIDOPA\LEVODOPA
     Indication: Parkinson^s disease
     Route: 050
     Dates: start: 20221117
  2. CARBIDOPA\LEVODOPA [Suspect]
     Active Substance: CARBIDOPA\LEVODOPA
     Dosage: FIRST ADMIN DATE : 2023
     Route: 050
     Dates: start: 2023
  3. CARBIDOPA\LEVODOPA [Suspect]
     Active Substance: CARBIDOPA\LEVODOPA
     Route: 050
  4. BETAMETHASONE DIPROPIONATE\GENTAMICIN SULFATE [Concomitant]
     Active Substance: BETAMETHASONE DIPROPIONATE\GENTAMICIN SULFATE
     Indication: Granuloma
     Dates: start: 202401, end: 202401

REACTIONS (10)
  - Humerus fracture [Recovering/Resolving]
  - Fall [Unknown]
  - Dyskinesia [Not Recovered/Not Resolved]
  - Off label use [Unknown]
  - Device dislocation [Unknown]
  - Clavicle fracture [Recovering/Resolving]
  - Gait inability [Unknown]
  - Walking aid user [Unknown]
  - Stoma site hypergranulation [Recovered/Resolved]
  - Device alarm issue [Unknown]

NARRATIVE: CASE EVENT DATE: 20230101
